FAERS Safety Report 7591536-3 (Version None)
Quarter: 2011Q3

REPORT INFORMATION
  Report Type: 
  Country: None (occurrence: None)
  Receive Date: 20110701
  Receipt Date: 20110701
  Transmission Date: 20111222
  Serious: Yes (Life-Threatening)
  Sender: FDA-Public Use
  Company Number: None

PATIENT
  Age: 61 Year
  Sex: Female
  Weight: 56.246 kg

DRUGS (2)
  1. CYMBALTA [Suspect]
     Indication: DEPRESSION
     Dosage: 20MGS QD PO
     Route: 048
     Dates: start: 20110619, end: 20110621
  2. CYMBALTA [Suspect]
     Indication: FIBROMYALGIA
     Dosage: 20MGS QD PO
     Route: 048
     Dates: start: 20110619, end: 20110621

REACTIONS (7)
  - ANXIETY [None]
  - BURNING SENSATION [None]
  - MIDDLE INSOMNIA [None]
  - PARAESTHESIA [None]
  - PARAESTHESIA ORAL [None]
  - HEART RATE INCREASED [None]
  - AGITATION [None]
